FAERS Safety Report 8439157-4 (Version None)
Quarter: 2012Q2

REPORT INFORMATION
  Report Type: 
  Country: None (occurrence: None)
  Receive Date: 20120615
  Receipt Date: 20120612
  Transmission Date: 20120825
  Serious: No
  Sender: FDA-Public Use
  Company Number: US-BAYER-2012-059045

PATIENT
  Age: 82 Year
  Sex: Female
  Weight: 66 kg

DRUGS (1)
  1. ALEVE (CAPLET) [Suspect]
     Indication: ANALGESIC THERAPY
     Dosage: 1 U, PRN
     Route: 048
     Dates: start: 20120101

REACTIONS (1)
  - PAIN [None]
